FAERS Safety Report 4270554-7 (Version None)
Quarter: 2004Q1

REPORT INFORMATION
  Report Type: 
  Country: None (occurrence: None)
  Receive Date: 20040113
  Receipt Date: 20040113
  Transmission Date: 20041129
  Serious: Yes (Disabling)
  Sender: FDA-Public Use
  Company Number: None

PATIENT
  Age: 64 Year
  Sex: Male

DRUGS (3)
  1. CISPLATIN [Suspect]
     Indication: CHEMOTHERAPY
     Dosage: 190 MCG X 1 INTRAVENOUS
     Route: 042
     Dates: start: 20031216, end: 20031216
  2. CISPLATIN [Suspect]
     Indication: LUNG NEOPLASM MALIGNANT
     Dosage: 190 MCG X 1 INTRAVENOUS
     Route: 042
     Dates: start: 20031216, end: 20031216
  3. PACLETOXEL [Concomitant]

REACTIONS (2)
  - DEAFNESS BILATERAL [None]
  - TINNITUS [None]
